FAERS Safety Report 9321475 (Version 1)
Quarter: 2013Q2

REPORT INFORMATION
  Report Type: Spontaneous
  Country: CA (occurrence: CA)
  Receive Date: 20130531
  Receipt Date: 20130531
  Transmission Date: 20140414
  Serious: Yes (Other)
  Sender: FDA-Public Use
  Company Number: CA-TEVA-409011USA

PATIENT
  Age: 50 Year
  Sex: Female
  Weight: 76 kg

DRUGS (6)
  1. CARBOPLATIN [Suspect]
     Dosage: 3.4286 MILLIGRAM DAILY; SOLUTION INTRAVENOUS
     Route: 042
  2. DEXAMETHASONE [Concomitant]
     Route: 065
  3. DIPHENHYDRAMINE [Concomitant]
     Route: 065
  4. ONDANSETRON [Concomitant]
     Route: 065
  5. PACLITAXEL INJECTION [Concomitant]
     Dosage: LIQUID INTRAVENOUS
     Route: 065
  6. RANITIDINE [Concomitant]
     Route: 065

REACTIONS (9)
  - Chest discomfort [Recovered/Resolved]
  - Feeling hot [Recovered/Resolved]
  - Heart rate increased [Recovered/Resolved]
  - Oedema peripheral [Recovered/Resolved]
  - Pruritus [Recovered/Resolved]
  - Respiratory rate increased [Recovered/Resolved]
  - Nausea [Recovered/Resolved]
  - Rash macular [Recovered/Resolved]
  - Erythema [Recovered/Resolved]
